FAERS Safety Report 10245924 (Version 3)
Quarter: 2014Q3

REPORT INFORMATION
  Report Type: Report from Study
  Country: US (occurrence: US)
  Receive Date: 20140619
  Receipt Date: 20140806
  Transmission Date: 20150326
  Serious: Yes (Other)
  Sender: FDA-Public Use
  Company Number: US-BRISTOL-MYERS SQUIBB COMPANY-20980470

PATIENT
  Age: 9 Month
  Sex: Female
  Weight: 1.2 kg

DRUGS (5)
  1. DARUNAVIR [Suspect]
     Active Substance: DARUNAVIR
     Indication: ANTIRETROVIRAL THERAPY
     Dosage: LAST DOSE:18JUN13
     Route: 048
     Dates: end: 20130618
  2. REYATAZ [Suspect]
     Active Substance: ATAZANAVIR SULFATE
     Indication: ANTIRETROVIRAL THERAPY
     Dosage: 8OCT13:400 MG?13OCT13
     Route: 064
     Dates: start: 20130618
  3. NORVIR [Suspect]
     Active Substance: RITONAVIR
     Indication: ANTIRETROVIRAL THERAPY
     Dosage: LAST DOSE:13OCT13
     Route: 064
     Dates: start: 20130619
  4. HYDROXYZINE [Concomitant]
     Active Substance: HYDROXYZINE\HYDROXYZINE HYDROCHLORIDE
  5. TRUVADA [Suspect]
     Active Substance: EMTRICITABINE\TENOFOVIR DISOPROXIL FUMARATE
     Indication: ANTIRETROVIRAL THERAPY
     Dosage: TAB/CAPS?LAST DOSE:13OCT13
     Route: 064
     Dates: start: 20130619

REACTIONS (3)
  - Premature baby [Unknown]
  - Trisomy 21 [Unknown]
  - Foetal exposure during pregnancy [Recovered/Resolved]
